FAERS Safety Report 24665184 (Version 1)
Quarter: 2024Q4

REPORT INFORMATION
  Report Type: Report from Study
  Country: US (occurrence: US)
  Receive Date: 20241126
  Receipt Date: 20241126
  Transmission Date: 20250114
  Serious: Yes (Death)
  Sender: BAYER HEALTHCARE PHARMACEUTICALS INC.
  Company Number: US-BAYER-2024A167518

PATIENT
  Age: 85 Year
  Sex: Female
  Weight: 83.9 kg

DRUGS (25)
  1. ADEMPAS [Suspect]
     Active Substance: RIOCIGUAT
     Indication: Pulmonary arterial hypertension
     Dosage: UNK
     Route: 048
     Dates: start: 20240109
  2. ADEMPAS [Suspect]
     Active Substance: RIOCIGUAT
     Indication: Pulmonary arterial hypertension
     Dosage: 2.5 MG, TID
     Route: 048
  3. LACTASE [Concomitant]
     Active Substance: LACTASE
  4. ATORVASTATIN CALCIUM [Concomitant]
     Active Substance: ATORVASTATIN CALCIUM
  5. VITAMIN D3 [Concomitant]
     Active Substance: CHOLECALCIFEROL
  6. NYSTATIN [Concomitant]
     Active Substance: NYSTATIN
  7. TOBRADEX [Concomitant]
     Active Substance: DEXAMETHASONE\TOBRAMYCIN
  8. MAGNESIUM OXIDE [Concomitant]
     Active Substance: MAGNESIUM OXIDE
  9. PANTOPRAZOLE SODIUM [Concomitant]
     Active Substance: PANTOPRAZOLE SODIUM
  10. AQUAPHOR [Concomitant]
     Active Substance: PETROLATUM
  11. ALLOPURINOL [Concomitant]
     Active Substance: ALLOPURINOL
  12. AFRIN [Concomitant]
     Active Substance: OXYMETAZOLINE
  13. LOSARTAN POTASSIUM [Concomitant]
     Active Substance: LOSARTAN POTASSIUM
  14. PHAZYME [Concomitant]
     Active Substance: DIMETHICONE 410
  15. CALCITRIOL [Concomitant]
     Active Substance: CALCITRIOL
  16. LINZESS [Concomitant]
     Active Substance: LINACLOTIDE
  17. METOPROLOL SUCCINATE [Concomitant]
     Active Substance: METOPROLOL SUCCINATE
  18. OXYGEN [Concomitant]
     Active Substance: OXYGEN
  19. BUMETANIDE [Concomitant]
     Active Substance: BUMETANIDE
  20. CALTRATE [Concomitant]
     Active Substance: CALCIUM CARBONATE
  21. MECLIZINE HYDROCHLORIDE [Concomitant]
     Active Substance: MECLIZINE HYDROCHLORIDE
  22. VITAMIN E [Concomitant]
     Active Substance: .ALPHA.-TOCOPHEROL
  23. GLIMEPIRIDE [Concomitant]
     Active Substance: GLIMEPIRIDE
  24. TRIAMCINOLONE ACETONIDE [Concomitant]
     Active Substance: TRIAMCINOLONE ACETONIDE
  25. FERROUS SULFATE [Concomitant]
     Active Substance: FERROUS SULFATE

REACTIONS (1)
  - Death [Fatal]

NARRATIVE: CASE EVENT DATE: 20241027
